FAERS Safety Report 26019076 (Version 4)
Quarter: 2025Q4

REPORT INFORMATION
  Report Type: Spontaneous
  Country: US (occurrence: US)
  Receive Date: 20251110
  Receipt Date: 20251209
  Transmission Date: 20260117
  Serious: Yes (Other)
  Sender: ROCHE
  Company Number: US-ROCHE-10000430735

PATIENT
  Sex: Male

DRUGS (6)
  1. VABYSMO [Suspect]
     Active Substance: FARICIMAB-SVOA
     Indication: Product used for unknown indication
  2. VABYSMO [Suspect]
     Active Substance: FARICIMAB-SVOA
  3. VABYSMO [Suspect]
     Active Substance: FARICIMAB-SVOA
  4. VABYSMO [Suspect]
     Active Substance: FARICIMAB-SVOA
  5. AVASTIN [Suspect]
     Active Substance: BEVACIZUMAB
     Indication: Product used for unknown indication
  6. EYLEA [Concomitant]
     Active Substance: AFLIBERCEPT

REACTIONS (2)
  - Retinal detachment [Recovered/Resolved]
  - Swelling [Unknown]
